FAERS Safety Report 8880109 (Version 2)
Quarter: 2013Q1

REPORT INFORMATION
  Report Type: Spontaneous
  Country: US (occurrence: US)
  Receive Date: 20121031
  Receipt Date: 20130111
  Transmission Date: 20140127
  Serious: No
  Sender: FDA-Public Use
  Company Number: US-009507513-1210USA014162

PATIENT
  Age: 22 Year
  Sex: Female
  Weight: 63.49 kg

DRUGS (1)
  1. IMPLANON [Suspect]
     Indication: CONTRACEPTION
     Dosage: 1 ROD FOR 3 YEAR
     Dates: start: 20120112

REACTIONS (4)
  - Weight decreased [Unknown]
  - Implant site pruritus [Unknown]
  - Implant site oedema [Unknown]
  - Hypoaesthesia [Unknown]
